FAERS Safety Report 24218487 (Version 2)
Quarter: 2024Q3

REPORT INFORMATION
  Report Type: Spontaneous
  Country: CN (occurrence: CN)
  Receive Date: 20240816
  Receipt Date: 20240823
  Transmission Date: 20241016
  Serious: Yes (Hospitalization, Other)
  Sender: SANDOZ
  Company Number: CN-SANDOZ-SDZ2024CN072512

PATIENT
  Age: 88 Year
  Sex: Male
  Weight: 50 kg

DRUGS (3)
  1. ASPIRIN [Concomitant]
     Active Substance: ASPIRIN
     Indication: Product used for unknown indication
     Dosage: 1 DF
     Route: 065
  2. METFORMIN HYDROCHLORIDE [Concomitant]
     Active Substance: METFORMIN HYDROCHLORIDE
     Indication: Diabetes mellitus
     Dosage: 1 DF, QD
     Route: 065
  3. ACLASTA [Interacting]
     Active Substance: ZOLEDRONIC ACID
     Indication: Osteoporosis
     Dosage: 5 MG, 100ML (ONCE A YEAR)
     Route: 041
     Dates: start: 20240806, end: 20240806

REACTIONS (4)
  - Cardiac failure [Recovered/Resolved]
  - Contraindicated product administered [Not Recovered/Not Resolved]
  - Dyspnoea [Recovered/Resolved]
  - Blood pressure increased [Recovered/Resolved]

NARRATIVE: CASE EVENT DATE: 20240806
